FAERS Safety Report 10184646 (Version 9)
Quarter: 2015Q2

REPORT INFORMATION
  Report Type: Spontaneous
  Country: FR (occurrence: None)
  Receive Date: 20140519
  Receipt Date: 20150402
  Transmission Date: 20150821
  Serious: Yes (Death, Hospitalization, Other)
  Sender: FDA-Public Use
  Company Number: 2014132250

PATIENT
  Age: 40 Year
  Sex: Female

DRUGS (16)
  1. INEXIUM (ESOMEPRAZOLE MAGNESIUM) [Concomitant]
     Active Substance: ESOMEPRAZOLE MAGNESIUM
  2. IXPRIM (PARACETAMOL, TRAMADOL HYDROCHLORIDE) [Concomitant]
  3. VALIUM [Concomitant]
     Active Substance: DIAZEPAM
  4. CONTRAMAL (TRAMADOL HYDROCHLORIDE) [Concomitant]
  5. SODIUM CHLORIDE. [Concomitant]
     Active Substance: SODIUM CHLORIDE
  6. BIPROFENID (KETOPROFEN) [Concomitant]
  7. PARACETAMOL PANPHARMA (PARACETAMOL) [Concomitant]
  8. ALPRAZOLAM MYLAN (ALPRAZOLAM) [Concomitant]
  9. FRAGMINE [Suspect]
     Active Substance: DALTEPARIN SODIUM
     Indication: PROPHYLAXIS
     Dosage: 5000 IU ANTI XA/0.2 ML, DAILY, SUBCUTANEOUS
     Route: 058
     Dates: start: 20140313, end: 20140319
  10. HYDROCORTANCYL [Suspect]
     Active Substance: PREDNISONE
  11. FRAGMINE [Suspect]
     Active Substance: DALTEPARIN SODIUM
     Indication: DECUBITUS ULCER
     Dosage: 5000 IU ANTI XA/0.2 ML, DAILY, SUBCUTANEOUS
     Route: 058
     Dates: start: 20140313, end: 20140319
  12. DAFALGAN (PARACETAMOL) [Concomitant]
  13. ATARAX [Concomitant]
     Active Substance: HYDROXYZINE\HYDROXYZINE HYDROCHLORIDE
  14. METOCLOPRAMIDE HYDROCHLORIDE. [Concomitant]
     Active Substance: METOCLOPRAMIDE HYDROCHLORIDE
  15. TIAPRIDAL (TIAPRIDE) [Concomitant]
  16. LYRICA [Concomitant]
     Active Substance: PREGABALIN

REACTIONS (7)
  - Cerebral haematoma [None]
  - Contraindicated drug administered [None]
  - Brain death [None]
  - Post procedural complication [None]
  - Intracranial hypotension [None]
  - Vasculitis cerebral [None]
  - Headache [None]

NARRATIVE: CASE EVENT DATE: 201403
